FAERS Safety Report 16342921 (Version 1)
Quarter: 2019Q2

REPORT INFORMATION
  Report Type: Report from Study
  Country: CA (occurrence: CA)
  Receive Date: 20190522
  Receipt Date: 20190522
  Transmission Date: 20190711
  Serious: Yes (Other)
  Sender: FDA-Public Use
  Company Number: CA-HLSUS-2019-CA-000490

PATIENT
  Age: 48 Year
  Sex: Female

DRUGS (2)
  1. TEVA-CEFADROXIL [Concomitant]
     Active Substance: CEFADROXIL
     Indication: BREAST ABSCESS
  2. CLOZARIL [Suspect]
     Active Substance: CLOZAPINE
     Route: 048
     Dates: start: 20080505

REACTIONS (1)
  - Breast abscess [Unknown]

NARRATIVE: CASE EVENT DATE: 20190501
